FAERS Safety Report 5040740-7 (Version None)
Quarter: 2006Q3

REPORT INFORMATION
  Report Type: 
  Country: None (occurrence: None)
  Receive Date: 20060703
  Receipt Date: 20060621
  Transmission Date: 20061208
  Serious: Yes (Other)
  Sender: FDA-Public Use
  Company Number: PHBS2006ES09232

PATIENT
  Age: 67 Year
  Sex: Male

DRUGS (3)
  1. ZOMETA [Suspect]
     Indication: PROSTATE CANCER
     Dosage: 4 MG, UNK
     Route: 042
     Dates: start: 20030724, end: 20050101
  2. DECAPEPTYL [Concomitant]
     Route: 065
     Dates: start: 20000101
  3. MITOXANTRONE [Concomitant]
     Route: 065
     Dates: start: 20050501, end: 20051201

REACTIONS (5)
  - BONE DISORDER [None]
  - BONE FORMATION INCREASED [None]
  - CELLULITIS [None]
  - OSTEONECROSIS [None]
  - TOOTH EXTRACTION [None]
